FAERS Safety Report 26124513 (Version 1)
Quarter: 2025Q4

REPORT INFORMATION
  Report Type: Spontaneous
  Country: CN (occurrence: CN)
  Receive Date: 20251205
  Receipt Date: 20251205
  Transmission Date: 20260117
  Serious: Yes (Other)
  Sender: DAIICHI
  Company Number: CN-DSJP-DS-2025-180463-CN

PATIENT
  Age: 49 Year
  Sex: Female
  Weight: 69 kg

DRUGS (2)
  1. TRASTUZUMAB DERUXTECAN [Suspect]
     Active Substance: TRASTUZUMAB DERUXTECAN
     Indication: Symptomatic treatment
     Dosage: 5.4 MG/KG, ONCE EVERY 3 WK
     Route: 041
     Dates: start: 20251105, end: 20251105
  2. PACLITAXEL [Suspect]
     Active Substance: PACLITAXEL
     Indication: Symptomatic treatment
     Dosage: 135-175 MG/M2, 240 MG, ONCE EVERY 3 WK
     Route: 041
     Dates: start: 20251105, end: 20251105

REACTIONS (10)
  - Myelosuppression [Recovering/Resolving]
  - Metastases to bone [Unknown]
  - Metastases to spine [Unknown]
  - Metastases to central nervous system [Unknown]
  - Metastases to liver [Unknown]
  - Metastases to lung [Unknown]
  - Pneumonia [Unknown]
  - Metastases to lymph nodes [Unknown]
  - Pain [Unknown]
  - Disease progression [Unknown]

NARRATIVE: CASE EVENT DATE: 20251110
